FAERS Safety Report 6063111-3 (Version None)
Quarter: 2009Q1

REPORT INFORMATION
  Report Type: 
  Country: None (occurrence: None)
  Receive Date: 20090203
  Receipt Date: 20080909
  Transmission Date: 20090719
  Serious: No
  Sender: FDA-Public Use
  Company Number: JP-PFIZER INC-2009151913

PATIENT

DRUGS (14)
  1. MIGLITOL [Suspect]
     Indication: TYPE 2 DIABETES MELLITUS
     Dosage: 150 MG, UNK
     Route: 048
     Dates: start: 20080606, end: 20080725
  2. PREDONINE [Suspect]
     Indication: NEPHROTIC SYNDROME
     Dosage: UNK
     Route: 048
     Dates: start: 20080801
  3. PREDONINE [Suspect]
     Dosage: UNK
     Dates: start: 20080617, end: 20080731
  4. VALSARTAN [Concomitant]
     Indication: DIABETIC NEPHROPATHY
     Dosage: UNK
     Route: 048
     Dates: start: 20080424, end: 20080814
  5. VALSARTAN [Concomitant]
     Dosage: UNK
     Dates: start: 20080815
  6. WARFARIN [Concomitant]
     Indication: ATRIAL FIBRILLATION
     Dosage: UNK
     Route: 048
     Dates: start: 20080407, end: 20080722
  7. WARFARIN [Concomitant]
     Dosage: UNK
     Dates: start: 20080723, end: 20080101
  8. PARIET [Concomitant]
     Indication: GASTRITIS
     Dosage: UNK
     Route: 048
     Dates: start: 20080407
  9. ASPARA K [Concomitant]
     Indication: HYPOKALAEMIA
     Dosage: UNK
     Route: 048
     Dates: start: 20080410
  10. DIGOSIN [Concomitant]
     Dosage: UNK
     Route: 048
     Dates: start: 20080407, end: 20080808
  11. BIOFERMIN [Concomitant]
     Route: 048
  12. LIPITOR [Concomitant]
     Route: 048
  13. PREDONINE [Concomitant]
     Dosage: UNK
     Route: 048
     Dates: start: 20070101
  14. SULFONAMIDES, UREA DERIVATIVES [Concomitant]
     Indication: TYPE 2 DIABETES MELLITUS
     Dosage: UNK

REACTIONS (1)
  - PNEUMATOSIS INTESTINALIS [None]
